FAERS Safety Report 6273229-8 (Version None)
Quarter: 2009Q3

REPORT INFORMATION
  Report Type: 
  Country: None (occurrence: None)
  Receive Date: 20090720
  Receipt Date: 20090618
  Transmission Date: 20100115
  Serious: No
  Sender: FDA-Public Use
  Company Number: US-BAYER-200918771NA

PATIENT
  Age: 50 Year
  Sex: Female

DRUGS (2)
  1. AVELOX [Suspect]
     Indication: BRONCHITIS
     Dosage: TOTAL DAILY DOSE: 400 MG  UNIT DOSE: 400 MG
     Dates: start: 20081001, end: 20081001
  2. PREDNISONE [Concomitant]
     Dosage: TOTAL DAILY DOSE: 40 MG
     Dates: start: 20081001, end: 20081001

REACTIONS (1)
  - TENOSYNOVITIS [None]
